FAERS Safety Report 21270853 (Version 2)
Quarter: 2022Q3

REPORT INFORMATION
  Report Type: Spontaneous
  Country: FR (occurrence: FR)
  Receive Date: 20220830
  Receipt Date: 20220901
  Transmission Date: 20221027
  Serious: Yes (Death, Other)
  Sender: FDA-Public Use
  Company Number: FR-AFSSAPS-CF20221489

PATIENT
  Sex: Female
  Weight: 67 kg

DRUGS (4)
  1. OPDIVO [Suspect]
     Active Substance: NIVOLUMAB
     Indication: Clear cell renal cell carcinoma
     Dosage: 1 DOSAGE FORM?10 MG/ML
     Route: 042
     Dates: start: 20220629, end: 20220720
  2. OPDIVO [Suspect]
     Active Substance: NIVOLUMAB
     Dosage: 10 MG/ML
     Route: 042
     Dates: start: 20220720
  3. YERVOY [Suspect]
     Active Substance: IPILIMUMAB
     Indication: Clear cell renal cell carcinoma
     Dosage: 1 DOSAGE FORM?5 MG/ML
     Route: 042
     Dates: start: 20220629, end: 20220720
  4. YERVOY [Suspect]
     Active Substance: IPILIMUMAB
     Dosage: 5 MG/ML
     Route: 042
     Dates: start: 20220720

REACTIONS (1)
  - Myocardial necrosis [Fatal]

NARRATIVE: CASE EVENT DATE: 20220724
